FAERS Safety Report 8538033 (Version 4)
Quarter: 2012Q4

REPORT INFORMATION
  Report Type: 
  Country: JP (occurrence: JP)
  Receive Date: 20120501
  Receipt Date: 20121108
  Transmission Date: 20130627
  Serious: Yes (Death, Hospitalization)
  Sender: FDA-Public Use
  Company Number: JP-ROCHE-1062790

PATIENT
  Age: 69 Year
  Sex: Male

DRUGS (3)
  1. AVASTIN [Suspect]
     Indication: LUNG ADENOCARCINOMA
     Route: 041
     Dates: start: 20110715, end: 20110715
  2. CARBOPLATIN [Concomitant]
     Indication: LUNG ADENOCARCINOMA
     Dosage: Dosage is uncertain.
     Route: 041
     Dates: start: 20110715, end: 20110715
  3. TAXOL [Concomitant]
     Indication: LUNG ADENOCARCINOMA
     Dosage: Dosage is uncertain.
     Route: 041
     Dates: start: 20110715, end: 20110715

REACTIONS (2)
  - Myelodysplastic syndrome transformation [Fatal]
  - Myelodysplastic syndrome [Not Recovered/Not Resolved]
